FAERS Safety Report 22163415 (Version 2)
Quarter: 2023Q2

REPORT INFORMATION
  Report Type: Spontaneous
  Country: LT (occurrence: LT)
  Receive Date: 20230401
  Receipt Date: 20230623
  Transmission Date: 20230722
  Serious: Yes (Hospitalization)
  Sender: FDA-Public Use
  Company Number: LT-ROCHE-2932997

PATIENT
  Age: 65 Year
  Sex: Male
  Weight: 74 kg

DRUGS (11)
  1. PACLITAXEL [Suspect]
     Active Substance: PACLITAXEL
     Indication: Non-small cell lung cancer metastatic
     Dosage: 418 MG
     Route: 065
     Dates: start: 20210705
  2. CARBOPLATIN [Suspect]
     Active Substance: CARBOPLATIN
     Indication: Non-small cell lung cancer metastatic
     Dosage: 590 MG
     Route: 065
     Dates: start: 20210705
  3. BEVACIZUMAB [Suspect]
     Active Substance: BEVACIZUMAB
     Indication: Non-small cell lung cancer metastatic
     Dosage: 1170 MG
     Route: 065
     Dates: start: 20210705
  4. ATEZOLIZUMAB [Suspect]
     Active Substance: ATEZOLIZUMAB
     Indication: Non-small cell lung cancer metastatic
     Dosage: 1200 MG, Q4W (DOSE LAST STUDY DRUG ADMIN PRIOR AE IS 1200MG : 17/SEP/2021.DOSE LAST STUDY DRUG ADMIN
     Route: 042
     Dates: start: 20210705
  5. ATEZOLIZUMAB [Suspect]
     Active Substance: ATEZOLIZUMAB
     Dosage: 1200 MG
     Route: 042
     Dates: start: 20210917
  6. DEXAMETHASONE [Concomitant]
     Active Substance: DEXAMETHASONE
     Indication: Premedication
     Dosage: 20 MG,Q3W(12H AND 6H PRIOR PACLITAXEL)
     Route: 065
     Dates: start: 20210702
  7. DEXAMETHASONE [Concomitant]
     Active Substance: DEXAMETHASONE
     Dosage: PACLITAXEL: 20MG OF DEXAMETHASONE 12 HOURS AND 6 HOURS PRIOR PACLITAXEL INFUSION EVERY THREE WEEKS
     Route: 065
     Dates: start: 20210702
  8. WARFARIN SODIUM [Concomitant]
     Active Substance: WARFARIN SODIUM
     Indication: Product used for unknown indication
     Dosage: UNK UNK, QD
     Route: 065
  9. CORDARONE [Concomitant]
     Active Substance: AMIODARONE HYDROCHLORIDE
     Indication: Product used for unknown indication
     Dosage: UNK UNK, QD
     Route: 065
  10. METOPROLOL [Concomitant]
     Active Substance: METOPROLOL
     Indication: Product used for unknown indication
     Dosage: 50 MILLIGRAM, QD
     Route: 065
  11. WARFARIN SODIUM [Concomitant]
     Active Substance: WARFARIN SODIUM
     Indication: Product used for unknown indication
     Dosage: UNK
     Route: 065

REACTIONS (3)
  - Anaemia [Recovering/Resolving]
  - Hypothyroidism [Not Recovered/Not Resolved]
  - Haemoptysis [Recovered/Resolved]

NARRATIVE: CASE EVENT DATE: 20210826
